FAERS Safety Report 20393771 (Version 7)
Quarter: 2022Q4

REPORT INFORMATION
  Report Type: Spontaneous
  Country: PK (occurrence: PK)
  Receive Date: 20220128
  Receipt Date: 20221024
  Transmission Date: 20230113
  Serious: Yes (Other)
  Sender: FDA-Public Use
  Company Number: PK-PFIZER INC-202101599135

PATIENT
  Age: 30 Year
  Sex: Female

DRUGS (20)
  1. ENBREL [Suspect]
     Active Substance: ETANERCEPT
     Indication: Axial spondyloarthritis
     Dosage: 50 MILLIGRAM, QWK
     Route: 058
     Dates: start: 20210922
  2. ENBREL [Suspect]
     Active Substance: ETANERCEPT
     Dosage: 50 MILLIGRAM, Q2WK
     Route: 058
     Dates: start: 202203
  3. ENBREL [Suspect]
     Active Substance: ETANERCEPT
     Dosage: 50 MILLIGRAM, Q2WK
     Route: 058
     Dates: start: 20220428
  4. NAPROXEN [Suspect]
     Active Substance: NAPROXEN
     Indication: Product used for unknown indication
     Dosage: 1 DOSAGE FORM, QD, IN EVENING, AFTER MEAL
     Route: 065
  5. NAPROXEN [Suspect]
     Active Substance: NAPROXEN
     Dosage: 1 DOSAGE FORM, BID
     Route: 065
  6. RAZODEX [Concomitant]
     Dosage: 60 MILLIGRAM, QD
  7. BROMAZEPAM [Concomitant]
     Active Substance: BROMAZEPAM
     Dosage: 3 MILLIGRAM, 0 + 0 + 0.5 + 0
  8. ZEEGAP [Concomitant]
     Dosage: 50 MILLIGRAM,  AFTER MEAL
  9. ZEEGAP [Concomitant]
     Dosage: 75 MILLIGRAM, UNK
  10. ZEEGAP [Concomitant]
     Dosage: 100 MILLIGRAM, (AFTER MEAL,1 TAB IN EVENING)
  11. ETORICOXIB [Concomitant]
     Active Substance: ETORICOXIB
     Dosage: 60 MILLIGRAM, UNK
  12. PHLOGIN [DICLOFENAC SODIUM] [Concomitant]
     Dosage: 50 MILLIGRAM, QD AFTER MEAL
  13. PHLOGIN [DICLOFENAC SODIUM] [Concomitant]
     Dosage: UNK
  14. PHLOGIN [DICLOFENAC SODIUM] [Concomitant]
     Dosage: UNK, TID
  15. DULANE [Concomitant]
     Dosage: 30 MILLIGRAM, QD AFTER MEAL
  16. FERRICURE [FERRIC HYDROXIDE POLYMALTOSE COMPLEX] [Concomitant]
     Dosage: UNK, QD
  17. FERRICURE [FERRIC HYDROXIDE POLYMALTOSE COMPLEX] [Concomitant]
     Dosage: 50 MILLIGRAM, UNK
  18. FERRICURE [FERRIC HYDROXIDE POLYMALTOSE COMPLEX] [Concomitant]
     Dosage: 50 MILLIGRAM, UNK
  19. EVION [Concomitant]
     Active Substance: .ALPHA.-TOCOPHEROL ACETATE
     Dosage: 1 DOSAGE FORM, QD
  20. FEMIDOL PLUS [Concomitant]
     Dosage: 1 DOSAGE FORM, QD

REACTIONS (18)
  - Greater trochanteric pain syndrome [Unknown]
  - Infection [Unknown]
  - Alanine aminotransferase increased [Unknown]
  - Joint swelling [Unknown]
  - Haemoglobin urine present [Unknown]
  - Iron deficiency anaemia [Unknown]
  - Iron binding capacity total increased [Unknown]
  - Blood iron decreased [Unknown]
  - Constipation [Unknown]
  - Off label use [Unknown]
  - Blood pressure increased [Unknown]
  - Fibromyalgia [Unknown]
  - Arthralgia [Unknown]
  - Pain [Unknown]
  - Pruritus [Unknown]
  - Musculoskeletal stiffness [Unknown]
  - Back pain [Unknown]
  - Pain in extremity [Unknown]

NARRATIVE: CASE EVENT DATE: 20220301
